FAERS Safety Report 6324492-6 (Version None)
Quarter: 2009Q3

REPORT INFORMATION
  Report Type: 
  Country: None (occurrence: None)
  Receive Date: 20090824
  Receipt Date: 20090512
  Transmission Date: 20100115
  Serious: No
  Sender: FDA-Public Use
  Company Number: US-ABBOTT-09P-163-0573002-00

PATIENT
  Sex: Female

DRUGS (6)
  1. NIASPAN [Suspect]
     Indication: HIGH DENSITY LIPOPROTEIN DECREASED
     Dosage: 500MG X 2 TABLETS AT BEDTIME
     Dates: start: 20090505, end: 20090508
  2. NIASPAN [Suspect]
     Indication: LOW DENSITY LIPOPROTEIN INCREASED
  3. LISINOPRIL [Concomitant]
     Indication: DRUG USE FOR UNKNOWN INDICATION
  4. AVANDARYL [Concomitant]
     Indication: DRUG USE FOR UNKNOWN INDICATION
  5. OMEGA [Concomitant]
     Indication: DRUG USE FOR UNKNOWN INDICATION
  6. CALCIUM 600 + D [Concomitant]
     Indication: DRUG USE FOR UNKNOWN INDICATION

REACTIONS (5)
  - ABDOMINAL PAIN [None]
  - BLOOD GLUCOSE INCREASED [None]
  - FLUSHING [None]
  - MALAISE [None]
  - NAUSEA [None]
